FAERS Safety Report 8295099-9 (Version None)
Quarter: 2012Q2

REPORT INFORMATION
  Report Type: 
  Country: None (occurrence: None)
  Receive Date: 20120416
  Receipt Date: 20120409
  Transmission Date: 20120825
  Serious: Yes (Other)
  Sender: FDA-Public Use
  Company Number: CPI 3326

PATIENT
  Sex: Male

DRUGS (1)
  1. KRISTALOSE 20MG CPI [Suspect]
     Indication: CONSTIPATION
     Dosage: 20MG, TID PO
     Route: 048
     Dates: start: 20111103, end: 20111104

REACTIONS (4)
  - CONSTIPATION [None]
  - BURNING SENSATION [None]
  - DYSURIA [None]
  - FLATULENCE [None]
